FAERS Safety Report 6298937-4 (Version None)
Quarter: 2009Q3

REPORT INFORMATION
  Report Type: 
  Country: None (occurrence: None)
  Receive Date: 20090806
  Receipt Date: 20090804
  Transmission Date: 20100115
  Serious: Yes (Hospitalization)
  Sender: FDA-Public Use
  Company Number: FR-JNJFOC-20090800521

PATIENT
  Age: 43 Year
  Sex: Male

DRUGS (3)
  1. TAVANIC [Suspect]
     Indication: SEPSIS
     Route: 048
  2. RIFAMPICIN [Suspect]
     Indication: SEPSIS
     Route: 048
  3. ARIXTRA [Suspect]
     Indication: PROPHYLAXIS
     Route: 058

REACTIONS (2)
  - LYMPHOPENIA [None]
  - THROMBOCYTOPENIA [None]
